FAERS Safety Report 12315096 (Version 1)
Quarter: 2016Q2

REPORT INFORMATION
  Report Type: Spontaneous
  Country: US (occurrence: US)
  Receive Date: 20160428
  Receipt Date: 20160428
  Transmission Date: 20160815
  Serious: No
  Sender: FDA-Public Use
  Company Number: US-MALLINCKRODT-T201506064

PATIENT
  Age: 5 Year
  Sex: Male
  Weight: 17 kg

DRUGS (2)
  1. METHYLIN [Suspect]
     Active Substance: METHYLPHENIDATE HYDROCHLORIDE
     Indication: ATTENTION DEFICIT/HYPERACTIVITY DISORDER
     Dosage: 3 ML TWICE DAILY (IN THE MORNING AND AT NOON) MONDAY-FRIDAY
     Route: 048
     Dates: start: 20151107, end: 20151120
  2. METHYLIN [Suspect]
     Active Substance: METHYLPHENIDATE HYDROCHLORIDE
     Dosage: 8 ML TWICE DAILY (IN THE MORNING AND AT NOON) MONDAY-FRIDAY
     Route: 048
     Dates: start: 20151121

REACTIONS (12)
  - Vomiting [Recovered/Resolved]
  - Product physical consistency issue [Unknown]
  - Diarrhoea [Recovered/Resolved]
  - Product taste abnormal [Unknown]
  - Underdose [Recovered/Resolved]
  - Abdominal discomfort [Recovered/Resolved]
  - Aggression [Recovered/Resolved]
  - Drug effect decreased [Recovered/Resolved]
  - Product odour abnormal [Unknown]
  - Decreased appetite [Recovered/Resolved]
  - Hunger [Not Recovered/Not Resolved]
  - Cough [Recovered/Resolved]

NARRATIVE: CASE EVENT DATE: 201511
